FAERS Safety Report 5320518-7 (Version None)
Quarter: 2007Q1

REPORT INFORMATION
  Report Type: 
  Country: None (occurrence: None)
  Receive Date: 20070215
  Receipt Date: 20061214
  Transmission Date: 20070707
  Serious: Yes (Other)
  Sender: FDA-Public Use
  Company Number: MC200600901

PATIENT
  Sex: Female

DRUGS (2)
  1. ANGIOMAX [Suspect]
     Dates: start: 20061214
  2. INTEGRILIN [Concomitant]

REACTIONS (2)
  - HAEMATURIA [None]
  - PUNCTURE SITE HAEMORRHAGE [None]
